FAERS Safety Report 23984580 (Version 1)
Quarter: 2024Q2

REPORT INFORMATION
  Report Type: Spontaneous
  Country: US (occurrence: US)
  Receive Date: 20240618
  Receipt Date: 20240618
  Transmission Date: 20240716
  Serious: No
  Sender: FDA-Public Use
  Company Number: US-AUROBINDO-AUR-APL-2023-065651

PATIENT
  Age: 76 Year
  Sex: Female
  Weight: 53.523 kg

DRUGS (4)
  1. FAMOTIDINE [Suspect]
     Active Substance: FAMOTIDINE
     Indication: Limb injury
     Dosage: UNK UNK, ONCE A DAY
     Route: 048
  2. FAMOTIDINE [Suspect]
     Active Substance: FAMOTIDINE
     Indication: Back injury
  3. ALEVE [Suspect]
     Active Substance: NAPROXEN SODIUM
     Indication: Limb injury
     Dosage: UNK
     Route: 065
  4. ALEVE [Suspect]
     Active Substance: NAPROXEN SODIUM
     Indication: Back injury

REACTIONS (2)
  - Rash pruritic [Recovered/Resolved]
  - Feeling abnormal [Recovered/Resolved]
